FAERS Safety Report 9313190 (Version 1)
Quarter: 2013Q2

REPORT INFORMATION
  Report Type: Spontaneous
  Country: US (occurrence: US)
  Receive Date: 20130528
  Receipt Date: 20130528
  Transmission Date: 20140414
  Serious: No
  Sender: FDA-Public Use
  Company Number: US-ABBOTT-13P-163-1073131-00

PATIENT
  Age: 63 Year
  Sex: Male
  Weight: 90.8 kg

DRUGS (3)
  1. ANDROGEL [Suspect]
     Indication: BLOOD TESTOSTERONE DECREASED
     Route: 061
     Dates: start: 201302
  2. BENICAR [Concomitant]
     Indication: HYPERTENSION
  3. ZYRTEC [Concomitant]
     Indication: SEASONAL ALLERGY

REACTIONS (3)
  - Muscle disorder [Not Recovered/Not Resolved]
  - Sperm concentration decreased [Not Recovered/Not Resolved]
  - Asthenia [Not Recovered/Not Resolved]
